FAERS Safety Report 7012118-8 (Version None)
Quarter: 2010Q3

REPORT INFORMATION
  Report Type: 
  Country: None (occurrence: None)
  Receive Date: 20100922
  Receipt Date: 20100922
  Transmission Date: 20110219
  Serious: Yes (Hospitalization)
  Sender: FDA-Public Use
  Company Number: None

PATIENT
  Sex: Female
  Weight: 114.3 kg

DRUGS (2)
  1. CISPLATIN [Suspect]
     Dosage: 100 MG
     Dates: end: 20100831
  2. TAXOL [Suspect]
     Dosage: 350 MG
     Dates: end: 20100830

REACTIONS (4)
  - CHEST PAIN [None]
  - DYSPNOEA [None]
  - HERPES ZOSTER [None]
  - WHITE BLOOD CELL COUNT DECREASED [None]
